FAERS Safety Report 18614498 (Version 1)
Quarter: 2020Q4

REPORT INFORMATION
  Report Type: Spontaneous
  Country: AU (occurrence: AU)
  Receive Date: 20201215
  Receipt Date: 20201215
  Transmission Date: 20210114
  Serious: Yes (Death, Hospitalization)
  Sender: FDA-Public Use
  Company Number: NVSC2020AU329329

PATIENT
  Age: 67 Year
  Sex: Female

DRUGS (1)
  1. KYMRIAH [Suspect]
     Active Substance: TISAGENLECLEUCEL
     Indication: DIFFUSE LARGE B-CELL LYMPHOMA
     Dosage: UNK
     Route: 065
     Dates: start: 20200506

REACTIONS (12)
  - Condition aggravated [Unknown]
  - Cytogenetic abnormality [Unknown]
  - Syncope [Unknown]
  - Thrombocytopenia [Unknown]
  - Acute myeloid leukaemia [Unknown]
  - Metastases to meninges [Unknown]
  - Death [Fatal]
  - Febrile neutropenia [Unknown]
  - Fluid overload [Unknown]
  - Cytokine release syndrome [Unknown]
  - Anaemia [Unknown]
  - Leukocytosis [Unknown]

NARRATIVE: CASE EVENT DATE: 202010
